FAERS Safety Report 4464804-1 (Version None)
Quarter: 2004Q3

REPORT INFORMATION
  Report Type: 
  Country: None (occurrence: None)
  Receive Date: 20040928
  Receipt Date: 20040928
  Transmission Date: 20050211
  Serious: Yes (Death)
  Sender: FDA-Public Use
  Company Number: None

PATIENT
  Age: 40 Year
  Sex: Female

DRUGS (2)
  1. MORPHINE [Suspect]
     Indication: PAIN
     Dosage: 16 MG/4HR
  2. MS CONTIN [Suspect]
     Indication: PAIN
     Dosage: 60 MG TID

REACTIONS (1)
  - CARDIAC ARREST [None]
